FAERS Safety Report 7407475-4 (Version None)
Quarter: 2011Q2

REPORT INFORMATION
  Report Type: 
  Country: None (occurrence: None)
  Receive Date: 20110411
  Receipt Date: 20110329
  Transmission Date: 20111010
  Serious: Yes (Death, Hospitalization)
  Sender: FDA-Public Use
  Company Number: CA-MYLANLABS-2011S1006594

PATIENT
  Age: 61 Year
  Sex: Male

DRUGS (2)
  1. MYLAN-AMIODARONE [Suspect]
     Indication: HEART RATE IRREGULAR
     Route: 048
     Dates: start: 20080301, end: 20100101
  2. MYLAN-AMIODARONE [Suspect]
     Indication: ATRIAL FIBRILLATION
     Route: 048
     Dates: start: 20080301, end: 20100101

REACTIONS (3)
  - COMA [None]
  - DYSPNOEA [None]
  - HAEMOPTYSIS [None]
